FAERS Safety Report 8801314 (Version 1)
Quarter: 2012Q4

REPORT INFORMATION
  Report Type: Report from Study
  Country: DE (occurrence: DE)
  Receive Date: 20120921
  Receipt Date: 20120921
  Transmission Date: 20130627
  Serious: Yes (Hospitalization)
  Sender: FDA-Public Use
  Company Number: DE-009507513-1209DEU006036

PATIENT
  Age: 43 Year
  Sex: Male
  Weight: 82 kg

DRUGS (5)
  1. BOCEPREVIR [Suspect]
     Indication: HEPATITIS C
     Dosage: 400 mg, qd
     Route: 048
     Dates: start: 20120523
  2. CLINDAMYCIN [Suspect]
     Indication: DENTAL CARE
     Dosage: UNK, once daily
     Route: 048
     Dates: end: 20120903
  3. REBETOL [Suspect]
     Indication: HEPATITIS C
     Dosage: 800 mg, UNK
     Dates: start: 20120419
  4. PEGASYS [Concomitant]
     Indication: HEPATITIS C
     Dosage: 180 Microgram, qw
     Route: 058
     Dates: start: 20120419
  5. EUTHYROX [Concomitant]
     Indication: THYROID HORMONE REPLACEMENT THERAPY
     Dosage: 150-300 microgram
     Route: 048

REACTIONS (1)
  - Rash [Recovered/Resolved]
